FAERS Safety Report 15374190 (Version 1)
Quarter: 2018Q3

REPORT INFORMATION
  Report Type: Spontaneous
  Country: NL (occurrence: NL)
  Receive Date: 20180912
  Receipt Date: 20180912
  Transmission Date: 20181010
  Serious: Yes (Death, Other)
  Sender: FDA-Public Use
  Company Number: NL-BRISTOL-MYERS SQUIBB COMPANY-BMS-2018-074356

PATIENT
  Age: 70 Year
  Sex: Male

DRUGS (2)
  1. ELIQUIS [Suspect]
     Active Substance: APIXABAN
     Indication: CEREBROVASCULAR ACCIDENT PROPHYLAXIS
     Dosage: 5 MG, BID
     Route: 048
     Dates: start: 20180128
  2. GLICLAZIDE [Concomitant]
     Active Substance: GLICLAZIDE
     Indication: PRODUCT USED FOR UNKNOWN INDICATION
     Dosage: 80 MG, QD
     Route: 065

REACTIONS (9)
  - Eye haemorrhage [Unknown]
  - Impaired healing [Unknown]
  - General physical health deterioration [Unknown]
  - Contusion [Unknown]
  - Death [Fatal]
  - Wound haemorrhage [Unknown]
  - Gingival bleeding [Unknown]
  - Gingival erythema [Unknown]
  - Epistaxis [Unknown]

NARRATIVE: CASE EVENT DATE: 2018
